FAERS Safety Report 5775241-1 (Version None)
Quarter: 2008Q2

REPORT INFORMATION
  Report Type: 
  Country: None (occurrence: None)
  Receive Date: 20080617
  Receipt Date: 20080616
  Transmission Date: 20081010
  Serious: Yes (Hospitalization)
  Sender: FDA-Public Use
  Company Number: US-BAYER-200714821NA

PATIENT
  Age: 40 Year
  Sex: Male

DRUGS (3)
  1. BETASERON [Suspect]
     Indication: MULTIPLE SCLEROSIS
     Route: 058
     Dates: start: 20040719, end: 20050815
  2. BETASERON [Suspect]
     Dosage: TOTAL DAILY DOSE: 8 MIU
     Route: 058
     Dates: start: 20050821
  3. ADVIL [Concomitant]
     Indication: PREMEDICATION

REACTIONS (4)
  - ACTIVITIES OF DAILY LIVING IMPAIRED [None]
  - DYSGRAPHIA [None]
  - FATIGUE [None]
  - SPEECH DISORDER [None]
